FAERS Safety Report 8360794-X (Version None)
Quarter: 2012Q2

REPORT INFORMATION
  Report Type: 
  Country: None (occurrence: None)
  Receive Date: 20120515
  Receipt Date: 20120503
  Transmission Date: 20120825
  Serious: Yes (Death, Other)
  Sender: FDA-Public Use
  Company Number: DE-CELGENEUS-062-50794-12051294

PATIENT
  Age: 70 Year
  Sex: Female
  Weight: 57 kg

DRUGS (2)
  1. CYTARABINE [Concomitant]
     Indication: MENINGEAL DISORDER
     Route: 037
     Dates: start: 20120411
  2. VIDAZA [Suspect]
     Indication: ACUTE MYELOID LEUKAEMIA
     Dosage: 126 MILLIGRAM
     Route: 058
     Dates: start: 20120411, end: 20120415

REACTIONS (2)
  - SEPTIC SHOCK [None]
  - DIARRHOEA HAEMORRHAGIC [None]
